FAERS Safety Report 4295496-2 (Version None)
Quarter: 2004Q1

REPORT INFORMATION
  Report Type: 
  Country: None (occurrence: None)
  Receive Date: 20040216
  Receipt Date: 20030709
  Transmission Date: 20041129
  Serious: No
  Sender: FDA-Public Use
  Company Number: US-GLAXOSMITHKLINE-A0416393A

PATIENT
  Age: 49 Year
  Sex: Female

DRUGS (5)
  1. PAXIL [Suspect]
     Indication: ANGER
     Dates: start: 20020701
  2. ELAVIL [Concomitant]
     Dates: start: 19940101
  3. ZYRTEC [Concomitant]
  4. TYLENOL (CAPLET) [Concomitant]
  5. IBUPROFEN [Concomitant]

REACTIONS (1)
  - MYDRIASIS [None]
